FAERS Safety Report 18198774 (Version 3)
Quarter: 2023Q4

REPORT INFORMATION
  Report Type: Spontaneous
  Country: PL (occurrence: PL)
  Receive Date: 20200826
  Receipt Date: 20231018
  Transmission Date: 20240109
  Serious: Yes (Other)
  Sender: FDA-Public Use
  Company Number: PL-MLMSERVICE-20200818-2445006-2

PATIENT
  Age: 15 Year
  Sex: Male

DRUGS (6)
  1. METHYLPREDNISOLONE [Suspect]
     Active Substance: METHYLPREDNISOLONE
     Indication: Haemophagocytic lymphohistiocytosis
     Dosage: UNK, CYCLIC
     Dates: start: 201703
  2. PREDNISOLONE [Suspect]
     Active Substance: PREDNISOLONE
     Indication: B precursor type acute leukaemia
     Dosage: UNK, CYCLIC (INDUCTION THERAPY ONCE PER WEEK WITH FOUR TOTAL DOSES)
  3. PREDNISONE [Suspect]
     Active Substance: PREDNISONE
     Indication: B precursor type acute leukaemia
     Dosage: UNK (CYTOREDUCTIVE PREDNISONE PROPHASE)
     Dates: start: 201612
  4. ETOPOSIDE [Concomitant]
     Active Substance: ETOPOSIDE
     Indication: Haemophagocytic lymphohistiocytosis
     Dosage: UNK
     Dates: start: 201703
  5. VINBLASTINE [Concomitant]
     Active Substance: VINBLASTINE
     Indication: Haemophagocytic lymphohistiocytosis
     Dosage: UNK
     Dates: start: 201703
  6. IMMUNE GLOBULIN NOS [Concomitant]
     Active Substance: IMMUNE GLOBULIN NOS
     Indication: Haemophagocytic lymphohistiocytosis
     Dosage: UNK
     Route: 042
     Dates: start: 201703

REACTIONS (5)
  - Adrenal insufficiency [Unknown]
  - Steroid diabetes [Unknown]
  - Hypertension [Unknown]
  - Drug ineffective for unapproved indication [Unknown]
  - Off label use [Unknown]

NARRATIVE: CASE EVENT DATE: 20170101
